FAERS Safety Report 14914420 (Version 1)
Quarter: 2018Q2

REPORT INFORMATION
  Report Type: Spontaneous
  Country: FR (occurrence: FR)
  Receive Date: 20180518
  Receipt Date: 20180518
  Transmission Date: 20180711
  Serious: No
  Sender: FDA-Public Use
  Company Number: FR-JAZZ-2018-FR-004168

PATIENT
  Sex: Male

DRUGS (1)
  1. XYREM [Suspect]
     Active Substance: SODIUM OXYBATE
     Indication: PRODUCT USED FOR UNKNOWN INDICATION
     Dosage: UNKNOWN DOSE
     Route: 048
     Dates: start: 2010

REACTIONS (6)
  - Balance disorder [Unknown]
  - Fall [Recovered/Resolved]
  - Neck pain [Unknown]
  - Chills [Unknown]
  - Memory impairment [Unknown]
  - Tremor [Unknown]

NARRATIVE: CASE EVENT DATE: 201706
